FAERS Safety Report 11167888 (Version 3)
Quarter: 2015Q3

REPORT INFORMATION
  Report Type: Spontaneous
  Country: US (occurrence: US)
  Receive Date: 20150605
  Receipt Date: 20150915
  Transmission Date: 20151125
  Serious: Yes (Other)
  Sender: FDA-Public Use
  Company Number: US-TEVA-568319USA

PATIENT
  Sex: Female

DRUGS (1)
  1. COPAXONE [Suspect]
     Active Substance: GLATIRAMER ACETATE
     Indication: MULTIPLE SCLEROSIS
     Dosage: FORM STRENGTH UNKNOWN
     Route: 065

REACTIONS (5)
  - Cough [Unknown]
  - Urticaria [Unknown]
  - Injection site pruritus [Unknown]
  - Dyspnoea [Unknown]
  - Anaphylactic reaction [Unknown]
